FAERS Safety Report 23404057 (Version 4)
Quarter: 2024Q1

REPORT INFORMATION
  Report Type: Spontaneous
  Country: US (occurrence: US)
  Receive Date: 20240116
  Receipt Date: 20240214
  Transmission Date: 20240409
  Serious: Yes (Other)
  Sender: FDA-Public Use
  Company Number: US-ABBVIE-5588161

PATIENT
  Sex: Male

DRUGS (11)
  1. LUPRON [Suspect]
     Active Substance: LEUPROLIDE ACETATE
     Indication: Prostate cancer stage III
     Dosage: TWICE A YEAR
     Route: 065
     Dates: start: 2020
  2. LUPRON [Suspect]
     Active Substance: LEUPROLIDE ACETATE
     Indication: Prostate cancer stage IV
     Dosage: EVERY 3 MONTHS?INJECTION
     Route: 065
  3. LUPRON [Suspect]
     Active Substance: LEUPROLIDE ACETATE
     Dosage: EVERY 6 MONTHS INJECTION?FREQUENCY TEXT: EVERY 3-4 MONTHS
     Route: 065
  4. LUPRON [Suspect]
     Active Substance: LEUPROLIDE ACETATE
     Dosage: EVERY 3-4 WEEKS?INJECTION
     Route: 065
     Dates: start: 2020
  5. ENZALUTAMIDE [Suspect]
     Active Substance: ENZALUTAMIDE
     Indication: Prostate cancer
     Dosage: FORM STRENGTH: 80 MG
     Route: 048
     Dates: start: 202306, end: 202310
  6. ENZALUTAMIDE [Suspect]
     Active Substance: ENZALUTAMIDE
     Indication: Prostate cancer
     Dosage: FORM STRENGTH: 80 MG?ONCE DAILY.
     Route: 048
     Dates: start: 2023, end: 202305
  7. ENZALUTAMIDE [Suspect]
     Active Substance: ENZALUTAMIDE
     Indication: Prostate cancer
     Dosage: FORM STRENGTH: 80 MG?160 MG (40 MGX4), ONCE DAILY
     Route: 048
     Dates: start: 202109, end: 202301
  8. ENZALUTAMIDE [Suspect]
     Active Substance: ENZALUTAMIDE
     Indication: Prostate cancer
     Route: 048
     Dates: start: 20231031, end: 202311
  9. ENZALUTAMIDE [Suspect]
     Active Substance: ENZALUTAMIDE
     Indication: Prostate cancer
     Dosage: FORM STRENGTH: 40 MG?40MG, 4 TABLETS (PO) ORAL ONCE A DAY.?FIRST ADMIN DATE: NOV 2021
     Route: 048
     Dates: end: 202301
  10. ENZALUTAMIDE [Suspect]
     Active Substance: ENZALUTAMIDE
     Indication: Prostate cancer
     Dosage: 2 80MG TABLETS BY MOUTH ONCE A DAY
     Route: 048
     Dates: start: 202305
  11. PROLENSA [Concomitant]
     Active Substance: BROMFENAC SODIUM
     Indication: Product used for unknown indication
     Dosage: EYE DROPS
     Dates: start: 20230923

REACTIONS (8)
  - Cataract [Recovered/Resolved]
  - Fatigue [Unknown]
  - Paraesthesia [Not Recovered/Not Resolved]
  - Fatigue [Recovered/Resolved]
  - Astigmatism [Recovered/Resolved]
  - Cataract [Recovered/Resolved]
  - Therapeutic response shortened [Unknown]
  - Cataract [Unknown]

NARRATIVE: CASE EVENT DATE: 20220101
